FAERS Safety Report 19207432 (Version 1)
Quarter: 2021Q2

REPORT INFORMATION
  Report Type: Spontaneous
  Country: CN (occurrence: CN)
  Receive Date: 20210503
  Receipt Date: 20210503
  Transmission Date: 20210717
  Serious: Yes (Life-Threatening, Other)
  Sender: FDA-Public Use
  Company Number: NVSC2021CN099011

PATIENT
  Age: 35 Year
  Sex: Male
  Weight: 50 kg

DRUGS (2)
  1. CARBAMAZEPINE. [Suspect]
     Active Substance: CARBAMAZEPINE
     Indication: EPILEPSY
     Dosage: 0.2 G, BID
     Route: 048
     Dates: start: 20210404, end: 20210413
  2. AMBROXOL [Concomitant]
     Active Substance: AMBROXOL
     Indication: SPUTUM ABNORMAL
     Dosage: 90 MG, QD
     Route: 065
     Dates: start: 20210401, end: 20210416

REACTIONS (4)
  - Oedema peripheral [Recovering/Resolving]
  - Skin erosion [Recovering/Resolving]
  - Herpes virus infection [Recovering/Resolving]
  - Rash erythematous [Recovering/Resolving]

NARRATIVE: CASE EVENT DATE: 20210412
